FAERS Safety Report 18550497 (Version 17)
Quarter: 2022Q4

REPORT INFORMATION
  Report Type: Spontaneous
  Country: US (occurrence: US)
  Receive Date: 20201126
  Receipt Date: 20221206
  Transmission Date: 20230112
  Serious: Yes (Other)
  Sender: FDA-Public Use
  Company Number: US-PFIZER INC-2020323286

PATIENT
  Age: 88 Year
  Sex: Female

DRUGS (6)
  1. EUCRISA [Suspect]
     Active Substance: CRISABOROLE
     Indication: Inflammation
     Dosage: AFFECTED AREAS TWICE DAILY AS DIRECTED BY PHYSICIAN 120 GRAMS
     Route: 061
  2. EUCRISA [Suspect]
     Active Substance: CRISABOROLE
     Indication: Dermatitis atopic
     Dosage: UNK, 2X/DAY AS NEEDED
     Route: 061
     Dates: start: 20210901
  3. EUCRISA [Suspect]
     Active Substance: CRISABOROLE
     Dosage: UNK, AS NEEDED
     Route: 061
  4. EUCRISA [Suspect]
     Active Substance: CRISABOROLE
     Dosage: UNK, AS NEEDED (APPLY TO ARMS + LEGS BID (TWICE A DAY))
     Route: 061
     Dates: start: 20211216
  5. EUCRISA [Suspect]
     Active Substance: CRISABOROLE
     Dosage: APPLY TO AA OF SKIN BID AS NEEDED
  6. EUCRISA [Suspect]
     Active Substance: CRISABOROLE
     Dosage: APPLY TOPICALLY AS NEEDED
     Route: 061

REACTIONS (10)
  - Neoplasm malignant [Unknown]
  - Drug effective for unapproved indication [Unknown]
  - Pain in extremity [Unknown]
  - Frustration tolerance decreased [Unknown]
  - Feeling abnormal [Unknown]
  - Chronic obstructive pulmonary disease [Unknown]
  - Arthritis [Unknown]
  - Dry skin [Unknown]
  - Off label use [Unknown]
  - Off label use [Unknown]

NARRATIVE: CASE EVENT DATE: 20210201
